FAERS Safety Report 13677539 (Version 1)
Quarter: 2017Q2

REPORT INFORMATION
  Report Type: Spontaneous
  Country: US (occurrence: US)
  Receive Date: 20170622
  Receipt Date: 20170622
  Transmission Date: 20170830
  Serious: No
  Sender: FDA-Public Use
  Company Number: US-ELI_LILLY_AND_COMPANY-US201706008399

PATIENT
  Sex: Female

DRUGS (2)
  1. HUMULIN 70/30 [Suspect]
     Active Substance: INSULIN HUMAN
     Dosage: 55 U, EACH EVENING
     Route: 065
  2. HUMULIN 70/30 [Suspect]
     Active Substance: INSULIN HUMAN
     Indication: PRODUCT USED FOR UNKNOWN INDICATION
     Dosage: 66 U, EACH MORNING
     Route: 065

REACTIONS (5)
  - Swelling face [Unknown]
  - Vomiting [Unknown]
  - Nausea [Unknown]
  - Tooth infection [Unknown]
  - Malaise [Unknown]

NARRATIVE: CASE EVENT DATE: 20170616
